FAERS Safety Report 8816532 (Version 1)
Quarter: 2012Q4

REPORT INFORMATION
  Report Type: Spontaneous
  Country: US (occurrence: None)
  Receive Date: 20120927
  Receipt Date: 20120927
  Transmission Date: 20130627
  Serious: Yes (Death, Hospitalization)
  Sender: FDA-Public Use
  Company Number: IMP_05996_2012

PATIENT
  Age: 56 Year
  Sex: Male

DRUGS (5)
  1. METFORMIN [Suspect]
     Indication: TYPE 2 DIABETES MELLITUS
  2. CIPROFLOXACIN [Concomitant]
  3. PANTOPRAZOLE [Concomitant]
  4. LEVOTHYROXINE [Concomitant]
  5. GLYBURIDE [Concomitant]

REACTIONS (19)
  - Cardio-respiratory arrest [None]
  - Urinary tract infection [None]
  - Palpitations [None]
  - Dyspnoea [None]
  - Heart rate increased [None]
  - Hypotension [None]
  - Respiratory rate increased [None]
  - Oxygen saturation decreased [None]
  - Respiratory distress [None]
  - Lethargy [None]
  - Leukocytosis [None]
  - Agitation [None]
  - Renal failure acute [None]
  - Abdominal pain [None]
  - Pulseless electrical activity [None]
  - Cardiac arrest [None]
  - Metabolic acidosis [None]
  - Haemolysis [None]
  - Anaemia [None]
